FAERS Safety Report 7641319-0 (Version None)
Quarter: 2011Q3

REPORT INFORMATION
  Report Type: 
  Country: None (occurrence: None)
  Receive Date: 20110728
  Receipt Date: 20110719
  Transmission Date: 20111222
  Serious: Yes (Other)
  Sender: FDA-Public Use
  Company Number: US-JNJFOC-20110606631

PATIENT

DRUGS (6)
  1. THALIDOMIDE [Suspect]
     Route: 048
  2. ACYCLOVIR [Concomitant]
     Indication: PROPHYLAXIS
     Route: 048
  3. BORTEZOMIB [Suspect]
     Indication: MULTIPLE MYELOMA
     Dosage: SIX, 28 DAYS CYCLES: 1.3 MG/M2 ADMINISTERED ON DAYS 1,4,15 AND 18
     Route: 042
  4. WARFARIN SODIUM [Concomitant]
     Indication: THROMBOSIS PROPHYLAXIS
     Route: 065
  5. DOXORUBICIN HYDROCHLORIDE [Suspect]
     Indication: MULTIPLE MYELOMA
     Dosage: SIX, 28 DAYS CYCLE: 20 MG/M2 ADMINISTERED ON DAYS 1 AND 15
     Route: 042
  6. THALIDOMIDE [Suspect]
     Indication: MULTIPLE MYELOMA
     Dosage: SIX, 28 DAYS CYCLES: 200 MG ADMINISTERED THROUGHOUT THE STUDY
     Route: 048

REACTIONS (2)
  - BRADYCARDIA [None]
  - CARDIAC FAILURE CONGESTIVE [None]
